FAERS Safety Report 4765666-5 (Version None)
Quarter: 2005Q3

REPORT INFORMATION
  Report Type: 
  Country: None (occurrence: None)
  Receive Date: 20050906
  Receipt Date: 20050815
  Transmission Date: 20060218
  Serious: Yes (Life-Threatening, Hospitalization, Disabling)
  Sender: FDA-Public Use
  Company Number: MSTR-UK-0508S-0001

PATIENT
  Age: 64 Year
  Sex: Male

DRUGS (9)
  1. METASTRON [Suspect]
     Indication: BONE PAIN
     Dosage: I.V.
     Route: 042
     Dates: start: 20050806, end: 20050806
  2. METASTRON [Suspect]
     Indication: METASTATIC PAIN
     Dosage: I.V.
     Route: 042
     Dates: start: 20050806, end: 20050806
  3. GABAPENTIN [Concomitant]
  4. BICALUTAMIDE [Concomitant]
  5. PARACETAMOL [Concomitant]
  6. CALCIUM CARBONATE (CALCICHEW) [Concomitant]
  7. CLONAZEPAM [Concomitant]
  8. FUROSEMIDE [Concomitant]
  9. MORPHINE SULPHATE (ZOMORPH) [Concomitant]

REACTIONS (3)
  - PAIN [None]
  - SPINAL CORD COMPRESSION [None]
  - TUMOUR FLARE [None]
